FAERS Safety Report 20162243 (Version 1)
Quarter: 2021Q4

REPORT INFORMATION
  Report Type: Spontaneous
  Country: FR (occurrence: FR)
  Receive Date: 20211208
  Receipt Date: 20211208
  Transmission Date: 20220303
  Serious: Yes (Other)
  Sender: FDA-Public Use
  Company Number: None

PATIENT
  Age: 87 Year
  Sex: Female

DRUGS (1)
  1. TOVIAZ [Suspect]
     Active Substance: FESOTERODINE FUMARATE
     Indication: Urinary incontinence
     Dosage: 40 MG
     Route: 048
     Dates: start: 20211117

REACTIONS (2)
  - Accidental overdose [Recovered/Resolved]
  - Anticholinergic syndrome [Recovered/Resolved]

NARRATIVE: CASE EVENT DATE: 20211117
